FAERS Safety Report 9340750 (Version 1)
Quarter: 2013Q2

REPORT INFORMATION
  Report Type: Spontaneous
  Country: AU (occurrence: AU)
  Receive Date: 20130610
  Receipt Date: 20130610
  Transmission Date: 20140414
  Serious: Yes (Disabling)
  Sender: FDA-Public Use
  Company Number: AU-BAXTER-2013BAX020728

PATIENT
  Age: 59 Year
  Sex: Female

DRUGS (5)
  1. KIOVIG NORMAL IMMUNOGLOBULIN (HUMAN) 5G/50ML FOR INTRAVENOUS USE INJEC [Suspect]
     Indication: CHRONIC INFLAMMATORY DEMYELINATING POLYRADICULONEUROPATHY
     Route: 042
     Dates: start: 20130527, end: 20130528
  2. KIOVIG NORMAL IMMUNOGLOBULIN (HUMAN) 5G/50ML FOR INTRAVENOUS USE INJEC [Suspect]
     Indication: OFF LABEL USE
     Route: 065
  3. PREDNISONE [Concomitant]
     Indication: PRODUCT USED FOR UNKNOWN INDICATION
     Route: 048
  4. ATACAND [Concomitant]
     Indication: PRODUCT USED FOR UNKNOWN INDICATION
     Route: 065
  5. ELOCOM [Concomitant]
     Indication: PRODUCT USED FOR UNKNOWN INDICATION

REACTIONS (4)
  - Systolic hypertension [Recovered/Resolved]
  - Cyanosis [Recovered/Resolved]
  - Tremor [Recovered/Resolved]
  - Chills [Recovered/Resolved]
